FAERS Safety Report 8317857-4 (Version None)
Quarter: 2012Q2

REPORT INFORMATION
  Report Type: 
  Country: None (occurrence: None)
  Receive Date: 20120427
  Receipt Date: 20120419
  Transmission Date: 20120825
  Serious: No
  Sender: FDA-Public Use
  Company Number: US-JNJFOC-20120409876

PATIENT
  Sex: Male
  Weight: 102.06 kg

DRUGS (2)
  1. FENTANYL-100 [Suspect]
     Indication: PRODUCT USED FOR UNKNOWN INDICATION
     Dosage: 2-75MCG -NDC0781 724355
     Route: 062
  2. FENTANYL-100 [Suspect]
     Indication: PAIN
     Dosage: 2-75MCG -NDC0781 724355
     Route: 062
     Dates: start: 20120419

REACTIONS (2)
  - WRONG TECHNIQUE IN DRUG USAGE PROCESS [None]
  - DRUG ADMINISTERED AT INAPPROPRIATE SITE [None]
